FAERS Safety Report 8428497-0 (Version None)
Quarter: 2012Q2

REPORT INFORMATION
  Report Type: 
  Country: None (occurrence: None)
  Receive Date: 20120612
  Receipt Date: 20120606
  Transmission Date: 20120825
  Serious: No
  Sender: FDA-Public Use
  Company Number: US-PFIZER INC-2012136466

PATIENT
  Sex: Female

DRUGS (6)
  1. VENLAFAXINE [Concomitant]
     Dosage: UNK
  2. ACTOS [Concomitant]
     Dosage: UNK
  3. METFORMIN [Concomitant]
     Dosage: UNK
  4. GENOTROPIN [Suspect]
     Indication: GROWTH HORMONE DEFICIENCY
     Dosage: UNK, 1X/DAY
     Route: 058
  5. PROGESTERONE [Concomitant]
     Dosage: UNK
  6. VIVELLE [Concomitant]
     Dosage: UNK

REACTIONS (3)
  - ONYCHOCLASIS [None]
  - ALOPECIA [None]
  - SKIN FISSURES [None]
